FAERS Safety Report 15836866 (Version 1)
Quarter: 2019Q1

REPORT INFORMATION
  Report Type: Spontaneous
  Country: US (occurrence: US)
  Receive Date: 20190117
  Receipt Date: 20190117
  Transmission Date: 20190417
  Serious: Yes (Hospitalization)
  Sender: FDA-Public Use
  Company Number: US-TEVA-2019-US-996446

PATIENT
  Sex: Male

DRUGS (1)
  1. AMLODIPINE W/VALSARTAN TEVA [Suspect]
     Active Substance: AMLODIPINE\VALSARTAN
     Dosage: DOSAGE FORM: 10 MG/320 MG
     Dates: end: 20181201

REACTIONS (2)
  - Recalled product administered [Unknown]
  - Pneumonia [Unknown]

NARRATIVE: CASE EVENT DATE: 20181230
